FAERS Safety Report 7486299-6 (Version None)
Quarter: 2011Q2

REPORT INFORMATION
  Report Type: 
  Country: None (occurrence: None)
  Receive Date: 20110517
  Receipt Date: 20110506
  Transmission Date: 20111010
  Serious: Yes (Life-Threatening, Hospitalization)
  Sender: FDA-Public Use
  Company Number: FR-KINGPHARMUSA00001-K201100558

PATIENT
  Age: 56 Year
  Sex: Male

DRUGS (5)
  1. METFORMIN HYDROCHLORIDE [Suspect]
     Dosage: 2 U, QD
     Dates: start: 20101220, end: 20110119
  2. AMLODIPINE BESYLATE [Suspect]
     Indication: HYPERTENSION
     Dosage: 10 MG, QD
     Route: 048
  3. AMARYL [Suspect]
     Indication: DIABETES MELLITUS
     Dosage: 3 MG, QD
     Route: 048
  4. ROSIGLITAZONE [Concomitant]
  5. ALTACE [Suspect]
     Indication: HYPERTENSION
     Dosage: 10 MG, QD
     Route: 048

REACTIONS (5)
  - GLOMERULONEPHRITIS ACUTE [None]
  - ARTHRALGIA [None]
  - LEUKOCYTOCLASTIC VASCULITIS [None]
  - VASCULAR PURPURA [None]
  - OEDEMA PERIPHERAL [None]
